FAERS Safety Report 16610505 (Version 1)
Quarter: 2019Q3

REPORT INFORMATION
  Report Type: Spontaneous
  Country: US (occurrence: US)
  Receive Date: 20190722
  Receipt Date: 20190722
  Transmission Date: 20191004
  Serious: No
  Sender: FDA-Public Use
  Company Number: US-OSMOTICA_PHARMACEUTICAL_US_LLC-POI0573201800226

PATIENT
  Age: 39 Year
  Sex: Female

DRUGS (2)
  1. DIVIGEL [Suspect]
     Active Substance: ESTRADIOL
     Indication: MENOPAUSAL SYMPTOMS
     Route: 062
     Dates: start: 20180926
  2. METOPROLOL. [Concomitant]
     Active Substance: METOPROLOL
     Indication: TACHYCARDIA

REACTIONS (1)
  - Drug ineffective [Recovering/Resolving]

NARRATIVE: CASE EVENT DATE: 20180928
